FAERS Safety Report 23847756 (Version 1)
Quarter: 2024Q2

REPORT INFORMATION
  Report Type: Report from Study
  Country: IT (occurrence: IT)
  Receive Date: 20240513
  Receipt Date: 20240513
  Transmission Date: 20240716
  Serious: Yes (Other)
  Sender: FDA-Public Use
  Company Number: None

PATIENT
  Age: 81 Year
  Sex: Male
  Weight: 78 kg

DRUGS (8)
  1. CARBOPLATIN [Suspect]
     Active Substance: CARBOPLATIN
     Indication: Bladder transitional cell carcinoma
     Dates: start: 20240325, end: 20240325
  2. GEMCITABINE [Suspect]
     Active Substance: GEMCITABINE
     Indication: Bladder transitional cell carcinoma
     Dates: start: 20240325, end: 20240325
  3. OMEPRAZOLE [Concomitant]
     Active Substance: DONEPEZIL HYDROCHLORIDE\OMEPRAZOLE\OMEPRAZOLE MAGNESIUM
  4. REPAGLINIDE [Concomitant]
     Active Substance: REPAGLINIDE
  5. DOXAZOSIN [Concomitant]
     Active Substance: DOXAZOSIN MESYLATE
  6. LINAGLIPTIN [Concomitant]
     Active Substance: LINAGLIPTIN
  7. EZEVAS [Concomitant]
  8. NEBIVOLOL [Concomitant]
     Active Substance: NEBIVOLOL

REACTIONS (4)
  - Azotaemia [Unknown]
  - Constipation [Recovering/Resolving]
  - Off label use [Unknown]
  - Haemoglobin decreased [Unknown]

NARRATIVE: CASE EVENT DATE: 20240325
